FAERS Safety Report 11339646 (Version 1)
Quarter: 2015Q3

REPORT INFORMATION
  Report Type: Spontaneous
  Country: US (occurrence: None)
  Receive Date: 20150804
  Receipt Date: 20150804
  Transmission Date: 20151125
  Serious: Yes (Disabling)
  Sender: FDA-Public Use
  Company Number: None

PATIENT
  Age: 60 Year
  Sex: Female
  Weight: 50.8 kg

DRUGS (7)
  1. ENBREL [Suspect]
     Active Substance: ETANERCEPT
     Indication: RHEUMATOID ARTHRITIS
     Route: 030
     Dates: start: 20140101, end: 20141002
  2. PREDNISONE. [Concomitant]
     Active Substance: PREDNISONE
  3. LEUCOVORIN. [Concomitant]
     Active Substance: LEUCOVORIN
  4. BACLOFEN. [Concomitant]
     Active Substance: BACLOFEN
  5. METHOTREXATE [Concomitant]
     Active Substance: METHOTREXATE
  6. SULFASALAZINE. [Concomitant]
     Active Substance: SULFASALAZINE
  7. FILED ACID [Concomitant]

REACTIONS (8)
  - Oral pain [None]
  - Dental caries [None]
  - Decreased appetite [None]
  - Pain [None]
  - Candida infection [None]
  - Toothache [None]
  - Sensitivity of teeth [None]
  - Glossodynia [None]

NARRATIVE: CASE EVENT DATE: 20150302
